FAERS Safety Report 6180754-7 (Version None)
Quarter: 2009Q2

REPORT INFORMATION
  Report Type: 
  Country: None (occurrence: None)
  Receive Date: 20090504
  Receipt Date: 20081009
  Transmission Date: 20091009
  Serious: Yes (Hospitalization)
  Sender: FDA-Public Use
  Company Number: KV200800112

PATIENT
  Age: 74 Year
  Sex: Female

DRUGS (7)
  1. MORPHINE SULFATE [Suspect]
     Indication: PAIN
     Dosage: 30 MG, BID, ORAL; 60 MG, BID, ORAL
     Route: 048
  2. XANAX [Concomitant]
  3. TRAMADOL HCL [Concomitant]
  4. ADVAIR DISKUS 100/50 [Concomitant]
  5. COLACE (DOCUSATE SODIUM) [Concomitant]
  6. ACETAMINOPHEN [Concomitant]
  7. ALBUTEROL /00139501/ (SALBUTAMOL) [Concomitant]

REACTIONS (9)
  - ABNORMAL BEHAVIOUR [None]
  - CONSTIPATION [None]
  - DECREASED ACTIVITY [None]
  - LOSS OF CONSCIOUSNESS [None]
  - OVERDOSE [None]
  - PRODUCT QUALITY ISSUE [None]
  - RHABDOMYOLYSIS [None]
  - SPEECH DISORDER [None]
  - URINARY TRACT INFECTION [None]
